APPROVED DRUG PRODUCT: PROZAC WEEKLY
Active Ingredient: FLUOXETINE HYDROCHLORIDE
Strength: EQ 90MG BASE **Federal Register determination that product was not discontinued or withdrawn for safety or effectiveness reasons**
Dosage Form/Route: CAPSULE, DELAYED REL PELLETS;ORAL
Application: N021235 | Product #001
Applicant: ELI LILLY AND CO
Approved: Feb 26, 2001 | RLD: Yes | RS: No | Type: DISCN